FAERS Safety Report 21595253 (Version 1)
Quarter: 2022Q4

REPORT INFORMATION
  Report Type: Report from Study
  Country: US (occurrence: US)
  Receive Date: 20221115
  Receipt Date: 20221115
  Transmission Date: 20230112
  Serious: No
  Sender: FDA-Public Use
  Company Number: US-ABBVIE-4155309

PATIENT
  Sex: Male

DRUGS (2)
  1. HUMIRA [Suspect]
     Active Substance: ADALIMUMAB
     Indication: Hidradenitis
     Dosage: FORM STRENGTH: 40
     Route: 058
  2. moderna covid -19 vaccine [Concomitant]
     Indication: COVID-19 immunisation
     Dosage: 01 IN 01 ONCE
     Route: 030

REACTIONS (1)
  - Injection site pain [Recovered/Resolved]
